FAERS Safety Report 4513141-5 (Version None)
Quarter: 2004Q4

REPORT INFORMATION
  Report Type: 
  Country: None (occurrence: None)
  Receive Date: 20041130
  Receipt Date: 20041119
  Transmission Date: 20050328
  Serious: Yes (Hospitalization)
  Sender: FDA-Public Use
  Company Number: JP-MERCK-0411USA03914

PATIENT
  Age: 67 Year
  Sex: Female

DRUGS (3)
  1. COZAAR [Suspect]
     Route: 048
  2. TEGRETOL [Concomitant]
     Route: 048
  3. HYDANTOL [Concomitant]
     Route: 048

REACTIONS (2)
  - LYMPHOCYTE STIMULATION TEST POSITIVE [None]
  - STEVENS-JOHNSON SYNDROME [None]
